FAERS Safety Report 10582000 (Version 2)
Quarter: 2014Q4

REPORT INFORMATION
  Report Type: Spontaneous
  Country: DE (occurrence: DE)
  Receive Date: 20141113
  Receipt Date: 20141113
  Transmission Date: 20150529
  Serious: Yes (Life-Threatening, Hospitalization, Disabling)
  Sender: FDA-Public Use
  Company Number: DE-BAYER-201022100GPV

PATIENT
  Age: 23 Year
  Sex: Female
  Weight: 61 kg

DRUGS (4)
  1. ASPISOL [Suspect]
     Active Substance: ASPIRIN LYSINE
     Indication: MIGRAINE
  2. ASPISOL [Suspect]
     Active Substance: ASPIRIN LYSINE
     Indication: NEURALGIA
     Dosage: UNK
     Route: 042
     Dates: start: 20080913, end: 20080913
  3. TRAMAL [Suspect]
     Active Substance: TRAMADOL
     Indication: MIGRAINE
     Dosage: UNK, UNK
     Route: 058
     Dates: start: 20080913
  4. METOCLOPRAMID [Concomitant]
     Active Substance: METOCLOPRAMIDE
     Indication: MIGRAINE
     Dosage: UNK
     Route: 042
     Dates: start: 20080913

REACTIONS (4)
  - Hemiparesis [Recovered/Resolved with Sequelae]
  - Cerebral haemorrhage [Recovered/Resolved with Sequelae]
  - Quadriparesis [Recovered/Resolved with Sequelae]
  - Cerebral haemangioma [Recovered/Resolved with Sequelae]

NARRATIVE: CASE EVENT DATE: 20080913
